FAERS Safety Report 5194574-3 (Version None)
Quarter: 2006Q4

REPORT INFORMATION
  Report Type: 
  Country: None (occurrence: None)
  Receive Date: 20061228
  Receipt Date: 20040122
  Transmission Date: 20070319
  Serious: Yes (Hospitalization)
  Sender: FDA-Public Use
  Company Number: JP-SHR-JP-SHR-04-020148

PATIENT
  Age: 43 Year
  Sex: Female
  Weight: 52 kg

DRUGS (7)
  1. BETAFERON [Suspect]
     Indication: MULTIPLE SCLEROSIS
     Dosage: 8 MIU, EVERY 2D
     Route: 058
     Dates: start: 20020212, end: 20031210
  2. BETAFERON [Suspect]
     Dosage: 8 MIU, EVERY 2D
     Route: 058
     Dates: start: 20041114
  3. ANTIFUNGALS [Concomitant]
     Route: 048
     Dates: start: 20031001
  4. VOLTAREN [Concomitant]
     Dosage: UNK, AS REQ'D
     Route: 054
     Dates: start: 20031101
  5. VOLTAREN-XR [Concomitant]
     Dosage: UNK, AS REQ'D
     Route: 048
     Dates: start: 20031101
  6. IMIGRAN [Concomitant]
     Dosage: UNK, AS REQ'D
     Route: 048
     Dates: start: 20031101
  7. DEPAS [Concomitant]
     Dosage: UNK, AS REQ'D
     Route: 048
     Dates: start: 20031101

REACTIONS (1)
  - NEPHROTIC SYNDROME [None]
